FAERS Safety Report 7959773-3 (Version None)
Quarter: 2011Q4

REPORT INFORMATION
  Report Type: 
  Country: None (occurrence: None)
  Receive Date: 20111206
  Receipt Date: 20111205
  Transmission Date: 20120403
  Serious: Yes (Death)
  Sender: FDA-Public Use
  Company Number: DE-GLAXOSMITHKLINE-D0073695A

PATIENT
  Age: 65 Year
  Sex: Male

DRUGS (1)
  1. ARIXTRA [Suspect]
     Indication: PULMONARY EMBOLISM
     Dosage: 7.5MG PER DAY
     Route: 058

REACTIONS (7)
  - THORACIC HAEMORRHAGE [None]
  - SUPERINFECTION [None]
  - STAPHYLOCOCCAL INFECTION [None]
  - ABSCESS [None]
  - GASTROSTOMY TUBE INSERTION [None]
  - HAEMORRHAGE SUBCUTANEOUS [None]
  - POST PROCEDURAL COMPLICATION [None]
